FAERS Safety Report 4391932-1 (Version None)
Quarter: 2004Q3

REPORT INFORMATION
  Report Type: 
  Country: None (occurrence: None)
  Receive Date: 20040701
  Receipt Date: 20040614
  Transmission Date: 20050211
  Serious: Yes (Hospitalization)
  Sender: FDA-Public Use
  Company Number: US_0405103279

PATIENT
  Age: 52 Year
  Sex: Female
  Weight: 84 kg

DRUGS (8)
  1. GEMCITABINE HYDROCHLORIDE-IV (GEMCITABINE) [Suspect]
     Indication: NON-SMALL CELL LUNG CANCER
     Dosage: 1000 MG/M2 OTHER
     Route: 050
     Dates: start: 20040112
  2. RADIOTHERAPY [Suspect]
     Indication: NON-SMALL CELL LUNG CANCER
     Dosage: 1.8 G/1 WEEK
     Dates: start: 20040112, end: 20040223
  3. CARBOPLATIN [Suspect]
     Indication: NON-SMALL CELL LUNG CANCER
     Dates: start: 20040323
  4. TYLENOL W/ CODEINE NO. 3 [Concomitant]
  5. SINGULAIR [Concomitant]
  6. ADVAIR DISKUS 100/50 [Concomitant]
  7. PREVACID [Concomitant]
  8. ROBITUSSIN A-C [Concomitant]

REACTIONS (10)
  - ATELECTASIS [None]
  - BREATH SOUNDS DECREASED [None]
  - FATIGUE [None]
  - HAEMOGLOBIN DECREASED [None]
  - OESOPHAGEAL STENOSIS [None]
  - OXYGEN SATURATION DECREASED [None]
  - PLATELET COUNT DECREASED [None]
  - PYREXIA [None]
  - RADIATION PNEUMONITIS [None]
  - WHEEZING [None]
